FAERS Safety Report 8269075-6 (Version None)
Quarter: 2012Q2

REPORT INFORMATION
  Report Type: 
  Country: None (occurrence: None)
  Receive Date: 20120409
  Receipt Date: 20120402
  Transmission Date: 20120825
  Serious: Yes (Death, Other)
  Sender: FDA-Public Use
  Company Number: US-TEVA-331637USA

PATIENT
  Age: 33 Year
  Sex: Female

DRUGS (1)
  1. METHYLPREDNISOLONE [Suspect]
     Indication: OPTIC NEUROPATHY
     Route: 042

REACTIONS (6)
  - SKIN DISCOLOURATION [None]
  - NECROTISING FASCIITIS [None]
  - LEUKOCYTOSIS [None]
  - BODY TEMPERATURE INCREASED [None]
  - ELECTROLYTE IMBALANCE [None]
  - SEPTIC SHOCK [None]
